FAERS Safety Report 17523910 (Version 4)
Quarter: 2020Q1

REPORT INFORMATION
  Report Type: Spontaneous
  Country: US (occurrence: US)
  Receive Date: 20200310
  Receipt Date: 20200320
  Transmission Date: 20200409
  Serious: Yes (Other)
  Sender: FDA-Public Use
  Company Number: US-PFIZER INC-2020104907

PATIENT
  Age: 9 Year
  Sex: Male
  Weight: 52.62 kg

DRUGS (4)
  1. LEVOTHYROXINE. [Concomitant]
     Active Substance: LEVOTHYROXINE
     Indication: HYPOPITUITARISM
     Dosage: 88 UG, 1X/DAY
     Dates: start: 2011
  2. GENOTROPIN MQ [Suspect]
     Active Substance: SOMATROPIN
     Indication: HYPOPITUITARISM
     Dosage: 1 MG, DAILY
     Dates: start: 20130305
  3. GENOTROPIN MQ [Suspect]
     Active Substance: SOMATROPIN
     Dosage: 1.0 MG, 1X/DAY
     Dates: start: 2011
  4. HYDROCORTISONE. [Concomitant]
     Active Substance: HYDROCORTISONE
     Indication: HYPOPITUITARISM
     Dosage: 12.5 MG, DAILY (5MG IN THE MORNING, 5MG IN THE AFTERNOON, 2.5MG IN THE EVENING.)
     Dates: start: 2011

REACTIONS (1)
  - Optic nerve hypoplasia [Unknown]
